FAERS Safety Report 7068663-2 (Version None)
Quarter: 2010Q4

REPORT INFORMATION
  Report Type: 
  Country: None (occurrence: None)
  Receive Date: 20101028
  Receipt Date: 20101022
  Transmission Date: 20110411
  Serious: Yes (Hospitalization)
  Sender: FDA-Public Use
  Company Number: GB-BRISTOL-MYERS SQUIBB COMPANY-15218431

PATIENT
  Age: 79 Year
  Sex: Male

DRUGS (12)
  1. METFORMIN HCL [Suspect]
     Indication: DIABETES MELLITUS
     Dosage: FORMULATION: 1500MG, ALSO TAKEN AS CONMED.
     Route: 048
  2. BENDROFLUMETHIAZIDE [Suspect]
     Indication: POLYURIA
     Dosage: ALSO TAKEN AS CONMED, FORMULATION: 2.5MG.
     Route: 048
  3. ATORVASTATIN CALCIUM [Suspect]
     Indication: HYPERCHOLESTEROLAEMIA
     Dosage: FORMULATION:20MG.
     Route: 048
     Dates: end: 20100712
  4. RAMIPRIL [Suspect]
     Indication: LEFT VENTRICULAR FAILURE
     Dosage: ALSO TAKEN AS CONMED, FORMULATION:7.5MG.
     Route: 048
  5. RAMIPRIL [Suspect]
     Indication: HYPERTENSION
     Dosage: ALSO TAKEN AS CONMED, FORMULATION:7.5MG.
     Route: 048
  6. FUROSEMIDE [Suspect]
     Indication: FLUID OVERLOAD
     Dosage: ALSO TAKEN AS CONMED, FORMULATION:40MG.
     Route: 048
  7. OXYCONTIN [Suspect]
     Indication: PHANTOM PAIN
     Dosage: FORMULATION:80MG.
     Route: 048
  8. OXYCODONE HCL [Suspect]
     Indication: BREAKTHROUGH PAIN
     Dosage: FORMULATION:40MG.
     Route: 048
     Dates: end: 20100712
  9. ASPIRIN [Concomitant]
  10. DOXYCYCLINE [Concomitant]
  11. PARACETAMOL [Concomitant]
  12. PREGABALIN [Concomitant]

REACTIONS (10)
  - ACCIDENTAL OVERDOSE [None]
  - BLOOD CREATINE PHOSPHOKINASE INCREASED [None]
  - CONFUSIONAL STATE [None]
  - DEHYDRATION [None]
  - ERYTHEMA [None]
  - HYPOPHAGIA [None]
  - MIOSIS [None]
  - NARCOTIC INTOXICATION [None]
  - RENAL FAILURE ACUTE [None]
  - SOMNOLENCE [None]
